FAERS Safety Report 12756552 (Version 1)
Quarter: 2016Q3

REPORT INFORMATION
  Report Type: Spontaneous
  Country: US (occurrence: US)
  Receive Date: 20160917
  Receipt Date: 20160917
  Transmission Date: 20161109
  Serious: No
  Sender: FDA-Public Use
  Company Number: US-009507513-1609USA007117

PATIENT
  Age: 43 Year
  Sex: Female
  Weight: 79.37 kg

DRUGS (2)
  1. ARMOUR THYROID [Concomitant]
     Active Substance: THYROID, PORCINE
  2. NUVARING [Suspect]
     Active Substance: ETHINYL ESTRADIOL\ETONOGESTREL
     Indication: HORMONE THERAPY
     Dosage: 015/.12 MG/ONE RING/THREE WEEKS
     Route: 067
     Dates: start: 2010

REACTIONS (3)
  - Decreased appetite [Recovered/Resolved]
  - Discomfort [Recovered/Resolved]
  - Product quality issue [Unknown]

NARRATIVE: CASE EVENT DATE: 201609
